FAERS Safety Report 7162526-X (Version None)
Quarter: 2010Q4

REPORT INFORMATION
  Report Type: 
  Country: None (occurrence: None)
  Receive Date: 20101215
  Receipt Date: 20101209
  Transmission Date: 20110411
  Serious: Yes (Hospitalization)
  Sender: FDA-Public Use
  Company Number: US-PFIZER INC-2010168340

PATIENT
  Age: 70 Year
  Sex: Female

DRUGS (4)
  1. DOXORUBICIN HCL [Suspect]
     Indication: ENDOMETRIAL CANCER METASTATIC
  2. CYCLOPHOSPHAMIDE [Suspect]
     Indication: ENDOMETRIAL CANCER METASTATIC
  3. FLUOROURACIL [Suspect]
     Indication: ENDOMETRIAL CANCER METASTATIC
  4. MEGESTROL ACETATE [Suspect]
     Indication: ENDOMETRIAL CANCER METASTATIC

REACTIONS (1)
  - PNEUMOTHORAX [None]
